FAERS Safety Report 9563053 (Version 1)
Quarter: 2013Q3

REPORT INFORMATION
  Report Type: Spontaneous
  Country: US (occurrence: US)
  Receive Date: 20130927
  Receipt Date: 20130927
  Transmission Date: 20140515
  Serious: No
  Sender: FDA-Public Use
  Company Number: US-TEVA-433296USA

PATIENT
  Age: 32 Year
  Sex: Female
  Weight: 52.21 kg

DRUGS (5)
  1. PARAGARD 380A [Suspect]
     Indication: CONTRACEPTION
     Route: 015
     Dates: start: 20130916, end: 20130916
  2. AMOUR THYROID [Concomitant]
     Indication: HYPOTHYROIDISM
  3. AZITHROMYCIN [Concomitant]
     Indication: LYME DISEASE
  4. KETOCONAZOLE [Concomitant]
     Indication: ACNE
  5. TRAMADOL [Concomitant]
     Indication: ENDOMETRIOSIS

REACTIONS (2)
  - Procedural pain [Unknown]
  - Presyncope [Unknown]
